FAERS Safety Report 9559360 (Version 1)
Quarter: 2013Q3

REPORT INFORMATION
  Report Type: Spontaneous
  Country: US (occurrence: None)
  Receive Date: 20130906
  Receipt Date: 20130906
  Transmission Date: 20140515
  Serious: No
  Sender: FDA-Public Use
  Company Number: 163-POMAL-13080585

PATIENT
  Age: 75 Year
  Sex: Male
  Weight: 92.53 kg

DRUGS (4)
  1. POMALYST (POMALIDOMIDE) (4 MILLIGRAM, CAPSULES) [Suspect]
     Indication: PLASMA CELL MYELOMA
     Dosage: 4MG, 21 IN 21 D
     Route: 048
     Dates: start: 20130617
  2. DEXAMETHASONE [Concomitant]
  3. ASPIRIN (ACETYLSALICYLIC ACID) [Concomitant]
  4. XALATAN (LATANOPROST) [Concomitant]

REACTIONS (2)
  - Gait disturbance [None]
  - Oedema peripheral [None]
